FAERS Safety Report 19855934 (Version 1)
Quarter: 2021Q3

REPORT INFORMATION
  Report Type: Spontaneous
  Country: ES (occurrence: ES)
  Receive Date: 20210920
  Receipt Date: 20210920
  Transmission Date: 20211014
  Serious: Yes (Other)
  Sender: FDA-Public Use
  Company Number: ES-MYLANLABS-2021M1062196

PATIENT
  Age: 52 Year
  Sex: Female
  Weight: 74 kg

DRUGS (7)
  1. EVEROLIMUS. [Suspect]
     Active Substance: EVEROLIMUS
     Indication: FLUSHING
     Dosage: UNK
  2. SOMATULINE AUTOGEL [Suspect]
     Active Substance: LANREOTIDE ACETATE
     Indication: CARCINOID SYNDROME
     Dosage: UNK
  3. SOMATULINE AUTOGEL [Suspect]
     Active Substance: LANREOTIDE ACETATE
     Indication: NEUROENDOCRINE TUMOUR
     Dosage: 120 MILLIGRAM
     Route: 058
     Dates: start: 201504
  4. SOMATULINE AUTOGEL [Suspect]
     Active Substance: LANREOTIDE ACETATE
     Dosage: UNK
  5. SOMATULINE AUTOGEL [Suspect]
     Active Substance: LANREOTIDE ACETATE
     Indication: METASTASES TO PERITONEUM
     Dosage: UNK
  6. SOMATULINE AUTOGEL [Suspect]
     Active Substance: LANREOTIDE ACETATE
     Indication: METASTASES TO LIVER
     Dosage: 120 MILLIGRAM
     Route: 058
  7. EVEROLIMUS. [Suspect]
     Active Substance: EVEROLIMUS
     Indication: DIARRHOEA
     Dosage: 10 MILLIGRAM, QD
     Dates: end: 201602

REACTIONS (11)
  - Lymphadenopathy [Unknown]
  - Cerebral calcification [Unknown]
  - Weight decreased [Recovered/Resolved]
  - Diarrhoea [Unknown]
  - Meningioma [Unknown]
  - Off label use [Unknown]
  - Intestinal mass [Unknown]
  - Flushing [Unknown]
  - Nodule [Unknown]
  - Hepatic lesion [Unknown]
  - Asthenia [Unknown]

NARRATIVE: CASE EVENT DATE: 201506
